FAERS Safety Report 5417964-X (Version None)
Quarter: 2007Q3

REPORT INFORMATION
  Report Type: 
  Country: None (occurrence: None)
  Receive Date: 20070817
  Receipt Date: 20070807
  Transmission Date: 20080115
  Serious: Yes (Hospitalization)
  Sender: FDA-Public Use
  Company Number: FR-NOVOPROD-266358

PATIENT
  Age: 87 Year
  Sex: Female
  Weight: 80 kg

DRUGS (1)
  1. NOVONORM [Suspect]
     Indication: DRUG USE FOR UNKNOWN INDICATION
     Dosage: 1.5 MG, QD
     Route: 048
     Dates: start: 20070710, end: 20070807

REACTIONS (2)
  - MICROANGIOPATHIC HAEMOLYTIC ANAEMIA [None]
  - VASCULITIS [None]
